FAERS Safety Report 5575471-8 (Version None)
Quarter: 2007Q4

REPORT INFORMATION
  Report Type: 
  Country: None (occurrence: None)
  Receive Date: 20071130
  Receipt Date: 20070723
  Transmission Date: 20080405
  Serious: No
  Sender: FDA-Public Use
  Company Number: US200706004432

PATIENT
  Sex: Female

DRUGS (3)
  1. BYETTA [Suspect]
     Indication: TYPE 2 DIABETES MELLITUS
     Dosage: SUBCUTANEOUS ; 10 UG, 2/D, SUBCUTANEOUS
     Route: 058
  2. NAPROSYN [Concomitant]
  3. GLYBURIDE [Concomitant]

REACTIONS (3)
  - BLOOD GLUCOSE DECREASED [None]
  - DRUG EFFECT DECREASED [None]
  - DRUG INTERACTION [None]
